FAERS Safety Report 17517217 (Version 1)
Quarter: 2020Q1

REPORT INFORMATION
  Report Type: Spontaneous
  Country: US (occurrence: US)
  Receive Date: 20200228
  Receipt Date: 20200228
  Transmission Date: 20200409
  Serious: Yes (Hospitalization)
  Sender: FDA-Public Use
  Company Number: None

PATIENT
  Age: 68 Year
  Sex: Female

DRUGS (1)
  1. CAPECITABINE 500 MG [Suspect]
     Active Substance: CAPECITABINE
     Indication: PANCREATIC CARCINOMA
     Dosage: FREQUENCY: 12 HOURS ON DAYS 1-14 OF 21 DAY CYCLE
     Route: 048
     Dates: start: 20200211

REACTIONS (2)
  - Therapy cessation [None]
  - Hospitalisation [None]
